FAERS Safety Report 19607856 (Version 2)
Quarter: 2021Q3

REPORT INFORMATION
  Report Type: Report from Study
  Country: FR (occurrence: FR)
  Receive Date: 20210726
  Receipt Date: 20210825
  Transmission Date: 20211014
  Serious: Yes (Death, Hospitalization)
  Sender: FDA-Public Use
  Company Number: FR-ROCHE-2875423

PATIENT
  Age: 68 Year
  Sex: Male

DRUGS (10)
  1. BISOPROLOL [Concomitant]
     Active Substance: BISOPROLOL
     Route: 048
  2. ELIQUIS [Concomitant]
     Active Substance: APIXABAN
     Route: 048
  3. BEVACIZUMAB. [Suspect]
     Active Substance: BEVACIZUMAB
     Indication: PANCREATIC NEUROENDOCRINE TUMOUR
     Dosage: LAST TREATMENT CYCLE 5: 09/JUN/2021, 2150 G
     Route: 042
     Dates: start: 20210408
  4. BEVACIZUMAB. [Suspect]
     Active Substance: BEVACIZUMAB
     Route: 013
  5. MIDAZOLAM. [Concomitant]
     Active Substance: MIDAZOLAM
  6. MORPHINE [Concomitant]
     Active Substance: MORPHINE
  7. STREPTOZOTOCIN [Suspect]
     Active Substance: STREPTOZOCIN
     Indication: PANCREATIC NEUROENDOCRINE TUMOUR
     Dosage: 800 MILLIGRAM PER SQUARE METRE, LAST TREATMENT CYCLE 5: 09/JUN/2021, 8500 MG
     Route: 042
     Dates: start: 20210408
  8. EXACYL [Concomitant]
     Active Substance: TRANEXAMIC ACID
  9. 5 FLUOROURACIL [Suspect]
     Active Substance: FLUOROURACIL
     Indication: PANCREATIC NEUROENDOCRINE TUMOUR
     Dosage: 400 MILLIGRAM PER SQUARE METRE, LAST TREATMENT CYCLE 5: 10/JUN/2021, 29.2 G
     Route: 042
     Dates: start: 20210408
  10. FUROSEMIDE. [Concomitant]
     Active Substance: FUROSEMIDE
     Route: 048

REACTIONS (3)
  - General physical health deterioration [Fatal]
  - Colonic abscess [Fatal]
  - Large intestine perforation [Fatal]

NARRATIVE: CASE EVENT DATE: 20210622
